FAERS Safety Report 8519047-9 (Version None)
Quarter: 2012Q3

REPORT INFORMATION
  Report Type: 
  Country: None (occurrence: None)
  Receive Date: 20120718
  Receipt Date: 20120710
  Transmission Date: 20120928
  Serious: Yes (Hospitalization)
  Sender: FDA-Public Use
  Company Number: PHHY2011FR07441

PATIENT
  Age: 20 Year
  Sex: Male

DRUGS (8)
  1. AZATHIOPRINE [Concomitant]
  2. RIFAMPICIN [Concomitant]
     Indication: PULMONARY TUBERCULOSIS
     Dosage: UNK
  3. ISONIAZID [Concomitant]
     Indication: PULMONARY TUBERCULOSIS
  4. CYCLOSPORINE [Concomitant]
     Indication: IMMUNOSUPPRESSION
     Dosage: UNK
  5. PYRAZINAMIDE [Suspect]
     Indication: PULMONARY TUBERCULOSIS
  6. STREPTOMYCIN [Concomitant]
     Indication: PULMONARY TUBERCULOSIS
  7. PREDNISOLONE [Concomitant]
     Indication: IMMUNOSUPPRESSION
     Dosage: UNK
  8. ETHAMBUTOL HYDROCHLORIDE [Concomitant]

REACTIONS (4)
  - HEPATITIS [None]
  - ACUTE HEPATIC FAILURE [None]
  - JAUNDICE [None]
  - HEPATIC ENCEPHALOPATHY [None]
